FAERS Safety Report 23683261 (Version 2)
Quarter: 2024Q2

REPORT INFORMATION
  Report Type: Spontaneous
  Country: US (occurrence: US)
  Receive Date: 20240328
  Receipt Date: 20240404
  Transmission Date: 20240716
  Serious: Yes (Life-Threatening, Hospitalization, Other)
  Sender: FDA-Public Use
  Company Number: US-LUPIN PHARMACEUTICALS INC.-2024-02540

PATIENT
  Age: 74 Year
  Sex: Female

DRUGS (15)
  1. VANCOMYCIN [Suspect]
     Active Substance: VANCOMYCIN
     Indication: Meningitis listeria
     Dosage: UNK
     Route: 065
  2. VANCOMYCIN [Suspect]
     Active Substance: VANCOMYCIN
     Indication: Meningitis pneumococcal
     Dosage: UNK
     Route: 065
  3. VANCOMYCIN [Suspect]
     Active Substance: VANCOMYCIN
     Indication: Evidence based treatment
  4. AMPICILLIN [Suspect]
     Active Substance: AMPICILLIN
     Indication: Meningitis listeria
     Dosage: UNK
     Route: 065
  5. AMPICILLIN [Suspect]
     Active Substance: AMPICILLIN
     Indication: Meningitis pneumococcal
  6. ROCEPHIN [Suspect]
     Active Substance: CEFTRIAXONE SODIUM
     Indication: Meningitis listeria
     Dosage: UNK
     Route: 065
  7. ROCEPHIN [Suspect]
     Active Substance: CEFTRIAXONE SODIUM
     Indication: Meningitis pneumococcal
  8. CEFEPIME [Suspect]
     Active Substance: CEFEPIME HYDROCHLORIDE
     Indication: Meningitis listeria
     Dosage: UNK
     Route: 065
  9. CEFEPIME [Suspect]
     Active Substance: CEFEPIME HYDROCHLORIDE
     Indication: Meningitis pneumococcal
  10. APIXABAN [Concomitant]
     Active Substance: APIXABAN
     Indication: Atrial fibrillation
     Dosage: UNK
     Route: 065
  11. LEVETIRACETAM [Concomitant]
     Active Substance: LEVETIRACETAM
     Indication: Seizure
     Dosage: UNK
     Route: 065
  12. PREDNISONE [Concomitant]
     Active Substance: PREDNISONE
     Indication: Rheumatoid arthritis
     Dosage: UNK
     Route: 065
  13. CERTOLIZUMAB [Concomitant]
     Active Substance: CERTOLIZUMAB
     Indication: Rheumatoid arthritis
     Dosage: UNK
     Route: 065
  14. DECADRON [Concomitant]
     Active Substance: DEXAMETHASONE
     Indication: Product used for unknown indication
     Dosage: UNK
     Route: 065
  15. ACYCLOVIR [Concomitant]
     Active Substance: ACYCLOVIR
     Indication: Evidence based treatment
     Dosage: UNK
     Route: 065

REACTIONS (8)
  - Coma [Not Recovered/Not Resolved]
  - Septic shock [Recovered/Resolved]
  - Haemodynamic instability [Unknown]
  - Acute kidney injury [Unknown]
  - Encephalopathy [Unknown]
  - CNS ventriculitis [Not Recovered/Not Resolved]
  - Drug ineffective for unapproved indication [Unknown]
  - Off label use [Unknown]
